FAERS Safety Report 5217023-5 (Version None)
Quarter: 2007Q1

REPORT INFORMATION
  Report Type: 
  Country: None (occurrence: None)
  Receive Date: 20070119
  Receipt Date: 20070109
  Transmission Date: 20070707
  Serious: Yes (Disabling)
  Sender: FDA-Public Use
  Company Number: 2007-152767-NL

PATIENT
  Age: 52 Year
  Sex: Female

DRUGS (2)
  1. MIRTAZAPINE [Suspect]
     Indication: DEPRESSION
     Dosage: 30 MG ORAL
     Route: 048
     Dates: start: 20060601, end: 20061001
  2. VENALAFAXINE  HYDROCHLORIDE [Concomitant]

REACTIONS (2)
  - MOBILITY DECREASED [None]
  - PAIN IN EXTREMITY [None]
